FAERS Safety Report 6114474-1 (Version None)
Quarter: 2009Q1

REPORT INFORMATION
  Report Type: 
  Country: None (occurrence: None)
  Receive Date: 20090313
  Receipt Date: 20090304
  Transmission Date: 20090719
  Serious: Yes (Hospitalization, Other)
  Sender: FDA-Public Use
  Company Number: FR-AMGEN-UK314293

PATIENT
  Sex: Female
  Weight: 69 kg

DRUGS (10)
  1. ARANESP [Suspect]
     Indication: RENAL FAILURE CHRONIC
     Route: 058
     Dates: start: 20080917, end: 20081001
  2. PLAVIX [Concomitant]
     Route: 065
  3. ACEBUTOLOL [Concomitant]
     Route: 065
  4. AMLOR [Concomitant]
     Route: 065
  5. ALENDRONIC ACID [Concomitant]
     Route: 065
  6. COLECALCIFEROL [Concomitant]
     Route: 065
  7. CALCIUM WITH VITAMIN D [Concomitant]
     Route: 065
  8. FERROUS SULFATE TAB [Concomitant]
     Route: 065
  9. DOLIPRANE [Concomitant]
     Route: 065
  10. OROKEN [Concomitant]
     Route: 065
     Dates: end: 20081021

REACTIONS (7)
  - FEELING HOT [None]
  - LEUKOCYTOCLASTIC VASCULITIS [None]
  - PRURITUS [None]
  - PURPURA [None]
  - SKIN LESION [None]
  - SKIN NECROSIS [None]
  - VASCULITIS [None]
